FAERS Safety Report 7414618-5 (Version None)
Quarter: 2011Q2

REPORT INFORMATION
  Report Type: 
  Country: None (occurrence: None)
  Receive Date: 20110414
  Receipt Date: 20110331
  Transmission Date: 20111010
  Serious: Yes (Death, Life-Threatening, Hospitalization)
  Sender: FDA-Public Use
  Company Number: SE-JNJFOC-20110308942

PATIENT
  Age: 66 Year
  Sex: Male

DRUGS (7)
  1. FOLIC ACID [Concomitant]
  2. ALVEDON [Concomitant]
  3. REMICADE [Suspect]
     Indication: RHEUMATOID ARTHRITIS
     Route: 042
  4. METHOTREXATE [Suspect]
     Indication: RHEUMATOID ARTHRITIS
  5. BEHEPAN [Concomitant]
     Route: 048
  6. KETOPROFEN [Concomitant]
     Route: 048
  7. ACETAMINOPHEN [Concomitant]
     Route: 048

REACTIONS (6)
  - DISSEMINATED INTRAVASCULAR COAGULATION [None]
  - PANCYTOPENIA [None]
  - SEPSIS [None]
  - RENAL FAILURE [None]
  - TULARAEMIA [None]
  - FUNGAL INFECTION [None]
